FAERS Safety Report 6305606-0 (Version None)
Quarter: 2009Q3

REPORT INFORMATION
  Report Type: 
  Country: None (occurrence: None)
  Receive Date: 20090811
  Receipt Date: 20090805
  Transmission Date: 20100115
  Serious: Yes (Death)
  Sender: FDA-Public Use
  Company Number: US-GILEAD-2009-0023506

PATIENT
  Sex: Female
  Weight: 59.928 kg

DRUGS (14)
  1. LETAIRIS [Suspect]
     Indication: PULMONARY ARTERIAL HYPERTENSION
     Route: 048
     Dates: start: 20080701
  2. ADVAIR HFA [Concomitant]
  3. ALBUTEROL [Concomitant]
  4. PROCARDIA XL [Concomitant]
  5. PREDNISONE [Concomitant]
  6. ROBITUSSIN-DM [Concomitant]
  7. CYPROHEPTADINE HCL [Concomitant]
  8. TRAMADOL [Concomitant]
  9. DARVOCET-N 100 [Concomitant]
  10. MELOXICAM [Concomitant]
  11. BENADRYL [Concomitant]
  12. NEXIUM [Concomitant]
  13. BIOTIN [Concomitant]
  14. PREVACID [Concomitant]

REACTIONS (1)
  - DEATH [None]
